FAERS Safety Report 11846372 (Version 1)
Quarter: 2015Q4

REPORT INFORMATION
  Report Type: Spontaneous
  Country: BR (occurrence: BR)
  Receive Date: 20151217
  Receipt Date: 20151217
  Transmission Date: 20160305
  Serious: Yes (Other)
  Sender: FDA-Public Use
  Company Number: BR-SA-2015SA133970

PATIENT
  Age: 27 Year
  Sex: Female
  Weight: 76 kg

DRUGS (2)
  1. ROVAMICINA [Suspect]
     Active Substance: SPIRAMYCIN
     Indication: TOXOPLASMOSIS
     Route: 048
     Dates: start: 201503, end: 20151024
  2. CLEXANE [Suspect]
     Active Substance: ENOXAPARIN SODIUM
     Indication: HYPERCOAGULATION
     Route: 058
     Dates: start: 201503, end: 20151208

REACTIONS (2)
  - Exposure during pregnancy [Unknown]
  - Toxoplasmosis [Unknown]
